FAERS Safety Report 8604270-5 (Version None)
Quarter: 2012Q3

REPORT INFORMATION
  Report Type: 
  Country: None (occurrence: None)
  Receive Date: 20120820
  Receipt Date: 20120806
  Transmission Date: 20120928
  Serious: No
  Sender: FDA-Public Use
  Company Number: US-JNJFOC-20120804115

PATIENT
  Sex: Female
  Weight: 49.9 kg

DRUGS (1)
  1. DURAGESIC-100 [Suspect]
     Indication: SURGERY
     Route: 062

REACTIONS (4)
  - ABNORMAL LOSS OF WEIGHT [None]
  - PRODUCT QUALITY ISSUE [None]
  - WRONG TECHNIQUE IN DRUG USAGE PROCESS [None]
  - MALAISE [None]
